FAERS Safety Report 18180468 (Version 1)
Quarter: 2020Q3

REPORT INFORMATION
  Report Type: Spontaneous
  Country: IT (occurrence: IT)
  Receive Date: 20200821
  Receipt Date: 20200821
  Transmission Date: 20201103
  Serious: Yes (Other)
  Sender: FDA-Public Use
  Company Number: IT-PFIZER INC-2020321958

PATIENT
  Age: 48 Year
  Sex: Male

DRUGS (5)
  1. REMERON [Suspect]
     Active Substance: MIRTAZAPINE
     Dosage: 1 DF, 1X/DAY (WHOLE TABLET, QD ALTERNATIVELY)
     Route: 048
     Dates: start: 2020
  2. ZOLOFT [Suspect]
     Active Substance: SERTRALINE HYDROCHLORIDE
     Indication: DEPRESSION
     Dosage: ONE HALF TABLET, QD (DAILY)
     Route: 048
     Dates: start: 2020, end: 2020
  3. REMERON [Suspect]
     Active Substance: MIRTAZAPINE
     Indication: DEPRESSION
     Dosage: ONE HALF TABLET, QD (DAILY)
     Route: 048
     Dates: start: 2020, end: 2020
  4. REMERON [Suspect]
     Active Substance: MIRTAZAPINE
     Dosage: ONE HALF TABLET, QD ALTERNATIVELY
     Route: 048
     Dates: start: 2020
  5. PARACODINA [DIHYDROCODEINE BITARTRATE] [Suspect]
     Active Substance: DIHYDROCODEINE BITARTRATE
     Indication: COUGH
     Dosage: 3 DROP, 1X/DAY, (3 DROPS, QD)
     Route: 048
     Dates: start: 202005, end: 2020

REACTIONS (5)
  - Malaise [Unknown]
  - Blood pressure decreased [Unknown]
  - Somnolence [Unknown]
  - Dizziness [Unknown]
  - Fatigue [Unknown]

NARRATIVE: CASE EVENT DATE: 2020
